APPROVED DRUG PRODUCT: ASCORBIC ACID
Active Ingredient: ASCORBIC ACID
Strength: 25,000MG/50ML (500MG/ML)
Dosage Form/Route: SOLUTION;INTRAVENOUS
Application: A217131 | Product #001 | TE Code: AP
Applicant: FRESENIUS KABI USA LLC
Approved: Aug 7, 2025 | RLD: No | RS: No | Type: RX